FAERS Safety Report 6431830-2 (Version None)
Quarter: 2009Q4

REPORT INFORMATION
  Report Type: 
  Country: None (occurrence: None)
  Receive Date: 20091104
  Receipt Date: 20091001
  Transmission Date: 20100525
  Serious: Yes (Other)
  Sender: FDA-Public Use
  Company Number: 2009-3987

PATIENT
  Sex: Male

DRUGS (6)
  1. DYSPORT [Suspect]
     Dosage: (120 UNITS)
  2. DEPAKENE [Concomitant]
  3. PERSANTIN [Concomitant]
  4. UNKNOWN MEDICATION(ALL OTHER THERAPEUTIC PRODUCTS) [Concomitant]
  5. FOLIUMZURR (FOLIC ACID) [Concomitant]
  6. KEPPRA [Concomitant]

REACTIONS (1)
  - GRAND MAL CONVULSION [None]
